FAERS Safety Report 9653222 (Version 3)
Quarter: 2014Q1

REPORT INFORMATION
  Report Type: Spontaneous
  Country: DE (occurrence: DE)
  Receive Date: 20131029
  Receipt Date: 20140226
  Transmission Date: 20141002
  Serious: Yes (Other)
  Sender: FDA-Public Use
  Company Number: DE-GLAXOSMITHKLINE-D0081607A

PATIENT
  Age: 72 Year
  Sex: Female
  Weight: 76 kg

DRUGS (2)
  1. ATMADISC [Suspect]
     Indication: ASTHMA
     Dosage: 1PUFF TWICE PER DAY
     Route: 055
     Dates: start: 201306, end: 201310
  2. SPIRONOLACTON [Concomitant]
     Indication: HYPERTENSION
     Dosage: 50MG PER DAY
     Route: 065
     Dates: start: 20130415

REACTIONS (1)
  - Diabetes mellitus [Not Recovered/Not Resolved]
